FAERS Safety Report 9608969 (Version 1)
Quarter: 2013Q4

REPORT INFORMATION
  Report Type: Spontaneous
  Country: SG (occurrence: SG)
  Receive Date: 20131009
  Receipt Date: 20131009
  Transmission Date: 20140711
  Serious: Yes (Other)
  Sender: FDA-Public Use
  Company Number: SG-PFIZER INC-2013284373

PATIENT
  Age: 57 Year
  Sex: Male

DRUGS (1)
  1. GLIPIZIDE [Suspect]

REACTIONS (1)
  - Musculoskeletal discomfort [Unknown]
